FAERS Safety Report 5091313-1 (Version None)
Quarter: 2006Q3

REPORT INFORMATION
  Report Type: 
  Country: None (occurrence: None)
  Receive Date: 20060825
  Receipt Date: 20060825
  Transmission Date: 20061208
  Serious: Yes (Hospitalization)
  Sender: FDA-Public Use
  Company Number: None

PATIENT
  Age: 68 Year
  Sex: Female
  Weight: 52.6173 kg

DRUGS (1)
  1. HUMIRA [Suspect]
     Indication: RHEUMATOID ARTHRITIS
     Dosage: 40 MG Q OTHER WEEK SQ
     Route: 058
     Dates: start: 20060117, end: 20060524

REACTIONS (3)
  - ABDOMINAL PAIN [None]
  - LYMPH NODE TUBERCULOSIS [None]
  - WEIGHT DECREASED [None]
